FAERS Safety Report 9413130 (Version 1)
Quarter: 2013Q2

REPORT INFORMATION
  Report Type: Spontaneous
  Country: US (occurrence: None)
  Receive Date: 20130509
  Receipt Date: 20130509
  Transmission Date: 20140414
  Serious: Yes (Hospitalization)
  Sender: FDA-Public Use
  Company Number: 2013PROUSA02650

PATIENT
  Age: 77 Year
  Sex: Male
  Weight: 90.7 kg

DRUGS (15)
  1. PROVENGE (SIPULEUCEL-T) SUSPENSION, 250ML [Suspect]
     Indication: PROSTATE CANCER METASTATIC
     Route: 042
     Dates: start: 20130111, end: 20130111
  2. ASPIRIN (ACETYLSALLCYCLIC ACID) [Concomitant]
  3. CALCIUM WITH VITAMIN D (CALCIUM CARBONATE, COLECALCIFEROL) [Concomitant]
  4. CARVEDILOL (CARVEDILOL) [Concomitant]
  5. DEMEROL (PETHIDINE HYDROCHLORIDE) [Concomitant]
  6. FENTANYL (FENTANYL CITRATE) [Concomitant]
  7. GABAPENTIN (GABAPENTIN) [Concomitant]
  8. IRON (FERROUS SULFATE) [Concomitant]
  9. LUPRON DEPOT-3 MONTH (LEUPRORELIN ACETATE) [Concomitant]
  10. MEGACE (MEGESTROL ACETATE) [Concomitant]
  11. MULTIVITAMIN (VITAMINS NOS) [Concomitant]
  12. PREDNISONE (PREDNISONE) [Concomitant]
  13. PRILOSEC (PRILOSEC) [Concomitant]
  14. PROCHLORPERAZINE MALEATE (PROCHLORPERAZINE MALEATE) [Concomitant]
  15. TRAZODONE HCL (TRAZODONE HYDROCHLORIDE) [Concomitant]

REACTIONS (6)
  - Laceration [None]
  - Muscular weakness [None]
  - Excoriation [None]
  - Pneumonia [None]
  - Adverse event [None]
  - Fall [None]
